FAERS Safety Report 4832851-3 (Version None)
Quarter: 2005Q4

REPORT INFORMATION
  Report Type: 
  Country: None (occurrence: None)
  Receive Date: 20051121
  Receipt Date: 20050811
  Transmission Date: 20060501
  Serious: Yes (Death, Hospitalization)
  Sender: FDA-Public Use
  Company Number: US-MERCK-0508USA02388

PATIENT
  Age: 68 Year
  Sex: Male
  Weight: 104 kg

DRUGS (8)
  1. VIOXX [Suspect]
     Indication: ARTHRALGIA
     Route: 048
     Dates: start: 20000801, end: 20040717
  2. VIOXX [Suspect]
     Route: 048
     Dates: start: 20000828
  3. VIOXX [Suspect]
     Route: 048
     Dates: start: 20000801
  4. VIOXX [Suspect]
     Route: 048
     Dates: start: 20000801, end: 20040717
  5. VIOXX [Suspect]
     Route: 048
     Dates: start: 20000828
  6. VIOXX [Suspect]
     Route: 048
     Dates: start: 20000801
  7. SYNTHROID [Concomitant]
     Route: 048
  8. DIAZEPAM [Concomitant]
     Route: 065

REACTIONS (23)
  - ASTHENIA [None]
  - ATRIAL FIBRILLATION [None]
  - BRADYCARDIA [None]
  - CARDIAC ARREST [None]
  - CARDIAC FAILURE CONGESTIVE [None]
  - CARDIOMYOPATHY [None]
  - CORONARY ARTERY DISEASE [None]
  - ERECTILE DYSFUNCTION [None]
  - GAMMOPATHY [None]
  - HAEMATOCHEZIA [None]
  - HEPATITIS [None]
  - HYPERLIPIDAEMIA [None]
  - HYPERTENSION [None]
  - HYPOCALCAEMIA [None]
  - HYPONATRAEMIA [None]
  - HYPOTENSION [None]
  - MENTAL STATUS CHANGES [None]
  - MUSCULAR WEAKNESS [None]
  - PAIN IN EXTREMITY [None]
  - PARAPROTEINAEMIA [None]
  - PLEURAL EFFUSION [None]
  - POST PROCEDURAL HAEMORRHAGE [None]
  - UPPER RESPIRATORY TRACT INFECTION [None]
